FAERS Safety Report 7040940-0 (Version None)
Quarter: 2010Q4

REPORT INFORMATION
  Report Type: 
  Country: None (occurrence: None)
  Receive Date: 20101013
  Receipt Date: 20100812
  Transmission Date: 20110411
  Serious: Yes (Hospitalization)
  Sender: FDA-Public Use
  Company Number: FR-NOVOPROD-311251

PATIENT
  Age: 10 Year
  Sex: Male

DRUGS (5)
  1. NOVOSEVEN [Suspect]
     Indication: HAEMOPHILIA
     Dosage: 133.3 UG/KG, UNK
     Dates: start: 20071016, end: 20080326
  2. NOVOSEVEN [Suspect]
     Dosage: 3.6 MG/48H/IV
     Route: 042
     Dates: start: 20071214
  3. NOVOSEVEN [Suspect]
     Dosage: 3.6 MG/48H/IV
  4. FLUCONAZOLE [Concomitant]
  5. CASPOFUNGIN ACETATE [Concomitant]

REACTIONS (1)
  - CANDIDA SEPSIS [None]
